FAERS Safety Report 12702951 (Version 2)
Quarter: 2018Q1

REPORT INFORMATION
  Report Type: Report from Study
  Country: BE (occurrence: BE)
  Receive Date: 20160831
  Receipt Date: 20180123
  Transmission Date: 20180508
  Serious: Yes (Hospitalization, Disabling, Other)
  Sender: FDA-Public Use
  Company Number: BE-GLAXOSMITHKLINE-BE2016GSK126072

PATIENT
  Age: 42 Year
  Sex: Female
  Weight: 68 kg

DRUGS (8)
  1. DAFALGAN CODEINE [Concomitant]
     Active Substance: ACETAMINOPHEN\CODEINE PHOSPHATE
  2. SIPRALEXA [Concomitant]
     Active Substance: ESCITALOPRAM OXALATE
  3. NITROFURANTOIN. [Concomitant]
     Active Substance: NITROFURANTOIN
  4. DICLOFENAC [Suspect]
     Active Substance: DICLOFENAC
     Indication: ANKYLOSING SPONDYLITIS
     Dosage: 75 MG, BID
     Route: 048
     Dates: start: 20130610
  5. ZALDIAR [Concomitant]
     Active Substance: ACETAMINOPHEN\TRAMADOL HYDROCHLORIDE
  6. PANTOMED (DEXPANTHENOL) [Concomitant]
     Active Substance: DEXPANTHENOL
  7. TRAMADOL. [Concomitant]
     Active Substance: TRAMADOL
  8. YASMINELLE [Concomitant]
     Active Substance: DROSPIRENONE

REACTIONS (4)
  - Ankylosing spondylitis [Unknown]
  - Urinary tract infection [Recovered/Resolved]
  - Nausea [Recovered/Resolved]
  - Migraine [Recovered/Resolved]

NARRATIVE: CASE EVENT DATE: 20140613
